FAERS Safety Report 20560061 (Version 1)
Quarter: 2022Q1

REPORT INFORMATION
  Report Type: Spontaneous
  Country: US (occurrence: US)
  Receive Date: 20220307
  Receipt Date: 20220307
  Transmission Date: 20220423
  Serious: No
  Sender: FDA-Public Use
  Company Number: US-PFIZER INC-2021873138

PATIENT
  Age: 37 Year
  Sex: Female

DRUGS (1)
  1. XELJANZ [Suspect]
     Active Substance: TOFACITINIB CITRATE
     Dosage: 5 MG, 2X/DAY
     Route: 048
     Dates: start: 202101

REACTIONS (4)
  - Nausea [Not Recovered/Not Resolved]
  - Fatigue [Unknown]
  - Malaise [Unknown]
  - Product dose omission issue [Not Recovered/Not Resolved]
